FAERS Safety Report 5625917-1 (Version None)
Quarter: 2008Q1

REPORT INFORMATION
  Report Type: 
  Country: None (occurrence: None)
  Receive Date: 20080214
  Receipt Date: 20080201
  Transmission Date: 20080703
  Serious: Yes (Congenital Anomaly, Other)
  Sender: FDA-Public Use
  Company Number: SE-AMGEN-US264404

PATIENT
  Sex: Male

DRUGS (4)
  1. ENBREL [Suspect]
     Indication: SPONDYLITIS
     Dates: start: 20051201, end: 20070401
  2. METOJECT [Suspect]
     Indication: SPONDYLITIS
     Dates: end: 20060705
  3. ALVEDON [Concomitant]
     Dosage: UNSPECIFIED DOSE, WHEN REQUIRED
  4. ORUDIS - SLOW RELEASE [Concomitant]
     Dosage: UNSPECIFIED
     Dates: start: 20070329

REACTIONS (2)
  - TRANSMISSION OF DRUG VIA SEMEN [None]
  - TRISOMY 21 [None]
